FAERS Safety Report 15895522 (Version 3)
Quarter: 2020Q1

REPORT INFORMATION
  Report Type: Spontaneous
  Country: FR (occurrence: FR)
  Receive Date: 20190131
  Receipt Date: 20200325
  Transmission Date: 20200409
  Serious: Yes (Congenital Anomaly, Other)
  Sender: FDA-Public Use
  Company Number: FR-PFIZER INC-2019034899

PATIENT
  Sex: Male
  Weight: 2 kg

DRUGS (4)
  1. VINCRISTINE SULFATE. [Suspect]
     Active Substance: VINCRISTINE SULFATE
     Indication: ANAPLASTIC LARGE-CELL LYMPHOMA
     Dosage: 2 MG, EVERY 3 WEEKS
     Route: 064
     Dates: start: 20181002, end: 20181023
  2. ENDOXAN [CYCLOPHOSPHAMIDE MONOHYDRATE] [Suspect]
     Active Substance: CYCLOPHOSPHAMIDE
     Indication: ANAPLASTIC LARGE-CELL LYMPHOMA
     Dosage: 1140 MG, EVERY 3 WEEKS
     Route: 064
     Dates: start: 20181002, end: 20181023
  3. ETOPOSIDE MYLAN [Suspect]
     Active Substance: ETOPOSIDE
     Indication: ANAPLASTIC LARGE-CELL LYMPHOMA
     Dosage: 155 MG, EVERY 3 WEEKS
     Route: 064
     Dates: start: 20181002, end: 20181023
  4. DOXORUBICINE TEVA [Suspect]
     Active Substance: DOXORUBICIN
     Indication: ANAPLASTIC LARGE-CELL LYMPHOMA
     Dosage: 76 MG, EVERY 3 WEEKS
     Route: 064
     Dates: start: 20181002, end: 20181023

REACTIONS (4)
  - Neutropenia neonatal [Recovered/Resolved]
  - Anaemia neonatal [Recovering/Resolving]
  - Exposure during pregnancy [Unknown]
  - Leukopenia neonatal [Recovered/Resolved]

NARRATIVE: CASE EVENT DATE: 20181002
